FAERS Safety Report 9550212 (Version 14)
Quarter: 2014Q2

REPORT INFORMATION
  Report Type: Report from Study
  Country: SE (occurrence: SE)
  Receive Date: 20130924
  Receipt Date: 20140409
  Transmission Date: 20141212
  Serious: Yes (Hospitalization)
  Sender: FDA-Public Use
  Company Number: SE-ROCHE-1275625

PATIENT
  Age: 29 Year
  Sex: Female
  Weight: 64.5 kg

DRUGS (17)
  1. VISMODEGIB [Suspect]
     Indication: BASAL CELL CARCINOMA
     Dosage: THE MOST RECENT DOSE PRIOR TO THE INTRACRANIAL ABSCESS WAS ON 02/SEP/2013. TEMPORARILY INTERRUPTED.
     Route: 048
     Dates: start: 20120630
  2. VISMODEGIB [Suspect]
     Dosage: THE MOST RECENT DOSE PRIOR TO THE BACTERIAL MENINGITIS WAS ON 17/NOV/2013. TEMPORARILY INTERRUPTED O
     Route: 048
     Dates: start: 20131021, end: 20131118
  3. FESOTERODINE [Concomitant]
     Indication: ENURESIS
     Route: 065
     Dates: start: 20081110
  4. DESMOPRESSIN [Concomitant]
     Indication: ENURESIS
     Route: 065
     Dates: start: 20090804
  5. SOMATROPIN [Concomitant]
     Indication: GROWTH HORMONE DEFICIENCY
     Route: 065
     Dates: start: 19860226
  6. ESTRADIOL/NORETHISTERONE [Concomitant]
     Indication: OOPHORECTOMY
     Dosage: TOTAL DAILY DOSE: 50/250 MICROGRAMS.
     Route: 065
     Dates: start: 20110523
  7. LEVETIRACETAM [Concomitant]
     Indication: EPILEPSY
     Route: 065
     Dates: start: 20091006, end: 20121014
  8. LEVETIRACETAM [Concomitant]
     Route: 065
     Dates: start: 20121015, end: 20130901
  9. LEVETIRACETAM [Concomitant]
     Route: 065
     Dates: start: 20130902
  10. VALPROIC ACID [Concomitant]
     Indication: EPILEPSY
     Route: 065
     Dates: start: 20121220, end: 20130903
  11. CLOXACILLIN [Concomitant]
     Indication: PROPHYLAXIS
     Route: 065
     Dates: start: 20130315, end: 20130316
  12. FLUCLOXACILLIN [Concomitant]
     Indication: WOUND INFECTION
     Route: 065
     Dates: start: 20130328, end: 20130406
  13. CLONAZEPAM [Concomitant]
     Indication: EPILEPSY
     Route: 065
     Dates: start: 20130826, end: 20130903
  14. LACOSAMIDE [Concomitant]
     Indication: EPILEPSY
     Route: 065
     Dates: start: 20130903, end: 20130916
  15. LACOSAMIDE [Concomitant]
     Route: 065
     Dates: start: 20130916
  16. OMEPRAZOLE [Concomitant]
     Indication: ABDOMINAL PAIN
     Route: 065
     Dates: start: 20130923
  17. FOLSYRA [Concomitant]
     Route: 065
     Dates: start: 20131203

REACTIONS (2)
  - Brain abscess [Recovered/Resolved]
  - Meningitis bacterial [Recovered/Resolved with Sequelae]
